FAERS Safety Report 17329163 (Version 1)
Quarter: 2020Q1

REPORT INFORMATION
  Report Type: Spontaneous
  Country: US (occurrence: US)
  Receive Date: 20200127
  Receipt Date: 20200127
  Transmission Date: 20200409
  Serious: No
  Sender: FDA-Public Use
  Company Number: US-SA-2020SA015345

PATIENT
  Sex: Male

DRUGS (4)
  1. PROBIOTIC [BIFIDOBACTERIUM LACTIS] [Concomitant]
     Active Substance: BIFIDOBACTERIUM ANIMALIS LACTIS
  2. VITAMIN D [COLECALCIFEROL] [Concomitant]
     Active Substance: CHOLECALCIFEROL
  3. BISOPROLOL [Concomitant]
     Active Substance: BISOPROLOL
  4. AUBAGIO [Suspect]
     Active Substance: TERIFLUNOMIDE
     Dosage: 14 MG, QD
     Route: 048
     Dates: start: 2017

REACTIONS (10)
  - Condition aggravated [Unknown]
  - Blood pressure increased [Unknown]
  - Fatigue [Unknown]
  - Visual impairment [Unknown]
  - Gait disturbance [Unknown]
  - Hypoaesthesia [Unknown]
  - Dizziness [Unknown]
  - Disturbance in attention [Unknown]
  - Diarrhoea [Unknown]
  - Weight increased [Unknown]
